FAERS Safety Report 4351147-X (Version None)
Quarter: 2004Q2

REPORT INFORMATION
  Report Type: 
  Country: None (occurrence: None)
  Receive Date: 20040428
  Receipt Date: 20030317
  Transmission Date: 20050107
  Serious: Yes (Hospitalization)
  Sender: FDA-Public Use
  Company Number: NSADSS2003013156

PATIENT
  Sex: Female

DRUGS (2)
  1. ULTRAM [Suspect]
     Indication: ARTHRALGIA
     Dosage: 50 MG, ORAL
     Route: 048
     Dates: start: 19990101
  2. SINGULAIR [Concomitant]

REACTIONS (3)
  - ANXIETY [None]
  - MOUTH ULCERATION [None]
  - URTICARIA [None]
